FAERS Safety Report 9377882 (Version 1)
Quarter: 2013Q3

REPORT INFORMATION
  Report Type: Spontaneous
  Country: ES (occurrence: IT)
  Receive Date: 20130701
  Receipt Date: 20130701
  Transmission Date: 20140515
  Serious: Yes (Other)
  Sender: FDA-Public Use
  Company Number: IT-FRI-1000046281

PATIENT
  Sex: Male

DRUGS (2)
  1. ACLIDINIUM [Suspect]
     Indication: CHRONIC OBSTRUCTIVE PULMONARY DISEASE
     Dosage: 322 MCG
     Route: 055
  2. INDACATEROL [Concomitant]

REACTIONS (1)
  - Epiglottic oedema [Recovered/Resolved]
